FAERS Safety Report 12636657 (Version 1)
Quarter: 2016Q3

REPORT INFORMATION
  Report Type: Spontaneous
  Country: US (occurrence: US)
  Receive Date: 20160809
  Receipt Date: 20160809
  Transmission Date: 20161109
  Serious: No
  Sender: FDA-Public Use
  Company Number: US-ACTAVIS-2016-05894

PATIENT
  Sex: Female

DRUGS (2)
  1. MICONAZOLE NITRATE-MICONAZOLE (AMALLC) [Suspect]
     Active Substance: MICONAZOLE NITRATE
     Indication: FUNGAL INFECTION
     Dosage: UNKNOWN
     Route: 065
  2. DIFLUCAN [Concomitant]
     Active Substance: FLUCONAZOLE
     Indication: FUNGAL INFECTION
     Dosage: UNK, UNKNOWN
     Route: 065

REACTIONS (2)
  - Unevaluable event [Unknown]
  - Drug ineffective [Unknown]
